FAERS Safety Report 5053479-9 (Version None)
Quarter: 2006Q3

REPORT INFORMATION
  Report Type: 
  Country: None (occurrence: None)
  Receive Date: 20060718
  Receipt Date: 20060706
  Transmission Date: 20061208
  Serious: Yes (Death, Hospitalization)
  Sender: FDA-Public Use
  Company Number: US-JNJFOC-20051104569

PATIENT
  Sex: Female
  Weight: 91.63 kg

DRUGS (3)
  1. ORTHO EVRA [Suspect]
     Indication: ACNE
     Route: 062
     Dates: start: 20020101, end: 20030101
  2. ORTHO TRI-CYCLEN [Suspect]
     Route: 048
  3. ORTHO TRI-CYCLEN [Suspect]
     Indication: ACNE
     Route: 048

REACTIONS (24)
  - ALPHA-1 ANTI-TRYPSIN DECREASED [None]
  - ANION GAP INCREASED [None]
  - ASCITES [None]
  - BLOOD AMYLASE DECREASED [None]
  - BUDD-CHIARI SYNDROME [None]
  - DEEP VEIN THROMBOSIS [None]
  - ESCHERICHIA INFECTION [None]
  - FACTOR V LEIDEN MUTATION [None]
  - FATIGUE [None]
  - HAEMORRHAGE [None]
  - HEPARIN-INDUCED THROMBOCYTOPENIA [None]
  - HEPATIC FAILURE [None]
  - HYPOTENSION [None]
  - HYPOXIA [None]
  - INSOMNIA [None]
  - INTERNATIONAL NORMALISED RATIO DECREASED [None]
  - INTESTINAL INFARCTION [None]
  - LIVER FUNCTION TEST ABNORMAL [None]
  - PERITONITIS [None]
  - PULMONARY EMBOLISM [None]
  - RENAL FAILURE [None]
  - RESPIRATORY FAILURE [None]
  - SEPSIS [None]
  - VENOUS THROMBOSIS [None]
